FAERS Safety Report 25134951 (Version 1)
Quarter: 2025Q1

REPORT INFORMATION
  Report Type: Spontaneous
  Country: KR (occurrence: KR)
  Receive Date: 20250328
  Receipt Date: 20250328
  Transmission Date: 20250409
  Serious: Yes (Other)
  Sender: MERCK SHARP & DOHME LLC
  Company Number: KR-009507513-2266362

PATIENT
  Age: 39 Year
  Sex: Female

DRUGS (1)
  1. CEFTOLOZANE SULFATE\TAZOBACTAM SODIUM [Suspect]
     Active Substance: CEFTOLOZANE SULFATE\TAZOBACTAM SODIUM
     Indication: Antibiotic therapy
     Dates: start: 20240103, end: 20240112

REACTIONS (1)
  - Coagulopathy [Recovered/Resolved]

NARRATIVE: CASE EVENT DATE: 20240108
